FAERS Safety Report 9363857 (Version 1)
Quarter: 2013Q2

REPORT INFORMATION
  Report Type: Report from Study
  Country: FR (occurrence: FR)
  Receive Date: 20130624
  Receipt Date: 20130624
  Transmission Date: 20140414
  Serious: Yes (Life-Threatening, Other)
  Sender: FDA-Public Use
  Company Number: FR-BAYER-2013-066831

PATIENT
  Age: 73 Year
  Sex: Male
  Weight: 71 kg

DRUGS (6)
  1. REGORAFENIB [Suspect]
     Indication: COLORECTAL CANCER METASTATIC
     Dosage: 160 MG, 3 WEEKS ON, 1 WEEK OFF
     Route: 048
     Dates: start: 20130513
  2. REGORAFENIB [Suspect]
     Indication: COLORECTAL CANCER METASTATIC
     Dosage: 160 MG, 3 WEEKS ON, 1 WEEK OFF
     Route: 048
     Dates: start: 20130617, end: 20130618
  3. PARACETAMOL [Concomitant]
     Dosage: DAILY DOSE 1 G
     Dates: start: 20130603, end: 20130619
  4. SPASFON [Concomitant]
     Indication: ABDOMINAL PAIN
     Dosage: UNK
     Dates: start: 20130611
  5. SILODOSIN [Concomitant]
     Dosage: 1 DF, QD
     Route: 048
  6. PREVISCAN [Concomitant]
     Indication: THROMBOSIS
     Dosage: 1 DF, QD
     Route: 048
     Dates: start: 20130201

REACTIONS (5)
  - Stomatitis [Not Recovered/Not Resolved]
  - Abdominal pain [Not Recovered/Not Resolved]
  - Erythema [Recovering/Resolving]
  - Kidney rupture [Not Recovered/Not Resolved]
  - Urinoma [Not Recovered/Not Resolved]
